FAERS Safety Report 13503399 (Version 1)
Quarter: 2017Q2

REPORT INFORMATION
  Report Type: Spontaneous
  Country: GB (occurrence: GB)
  Receive Date: 20170502
  Receipt Date: 20170502
  Transmission Date: 20170830
  Serious: Yes (Other)
  Sender: FDA-Public Use
  Company Number: GB-PFIZER INC-2017183033

PATIENT
  Age: 8 Year
  Sex: Female
  Weight: 18 kg

DRUGS (2)
  1. IBUPROFEN. [Suspect]
     Active Substance: IBUPROFEN
     Dosage: UNK
     Dates: start: 20170412
  2. PIRITON [Concomitant]
     Active Substance: CHLORPHENIRAMINE MALEATE
     Dosage: 5 ML, 3X/DAY
     Route: 048
     Dates: start: 20170412

REACTIONS (2)
  - Pruritus [Unknown]
  - Rash erythematous [Unknown]
